FAERS Safety Report 10247411 (Version 1)
Quarter: 2014Q2

REPORT INFORMATION
  Report Type: Spontaneous
  Country: FR (occurrence: FR)
  Receive Date: 20140619
  Receipt Date: 20140619
  Transmission Date: 20141212
  Serious: Yes (Hospitalization)
  Sender: FDA-Public Use
  Company Number: FR-009507513-1406FRA008880

PATIENT
  Age: 65 Year
  Sex: Female

DRUGS (2)
  1. FOSAMAX [Suspect]
     Dosage: UNK
     Route: 048
     Dates: start: 2004, end: 2008
  2. BONVIVA [Suspect]
     Dosage: UNK
     Route: 065
     Dates: start: 2008, end: 2014

REACTIONS (1)
  - Osteonecrosis [Unknown]
